FAERS Safety Report 19478105 (Version 2)
Quarter: 2021Q3

REPORT INFORMATION
  Report Type: Report from Study
  Country: BD (occurrence: BD)
  Receive Date: 20210630
  Receipt Date: 20210706
  Transmission Date: 20211014
  Serious: Yes (Death, Hospitalization)
  Sender: FDA-Public Use
  Company Number: NVSC2021BD146551

PATIENT
  Age: 14 Year
  Sex: Male
  Weight: 50 kg

DRUGS (1)
  1. ZARZIO [Suspect]
     Active Substance: FILGRASTIM
     Indication: NEUTROPENIA
     Dosage: UNK (30 MU/ 0.5 ML INJECTION)
     Route: 058
     Dates: start: 2019

REACTIONS (2)
  - Leukaemia [Fatal]
  - Malignant neoplasm progression [Fatal]
